FAERS Safety Report 4978003-8 (Version None)
Quarter: 2006Q2

REPORT INFORMATION
  Report Type: 
  Country: None (occurrence: None)
  Receive Date: 20060420
  Receipt Date: 20051004
  Transmission Date: 20061013
  Serious: Yes (Hospitalization, Disabling, Other)
  Sender: FDA-Public Use
  Company Number: US-MERCK-0510USA03489

PATIENT
  Age: 58 Year
  Sex: Female
  Weight: 68 kg

DRUGS (1)
  1. VIOXX [Suspect]
     Indication: ARTHRALGIA
     Route: 048
     Dates: start: 20000101, end: 20001101

REACTIONS (24)
  - ARTHROPATHY [None]
  - ASTHENIA [None]
  - CARDIOVASCULAR DISORDER [None]
  - CAROTID ARTERY STENOSIS [None]
  - CEREBRAL DISORDER [None]
  - CEREBRAL INFARCTION [None]
  - CEREBROVASCULAR ACCIDENT [None]
  - DEPRESSION [None]
  - DIZZINESS [None]
  - EMBOLISM [None]
  - FALL [None]
  - HEMIPLEGIA [None]
  - HIP ARTHROPLASTY [None]
  - HOT FLUSH [None]
  - ISCHAEMIC STROKE [None]
  - LOSS OF CONSCIOUSNESS [None]
  - MICTURITION URGENCY [None]
  - MUSCULOSKELETAL DISORDER [None]
  - NEURALGIA [None]
  - NEUROGENIC BLADDER [None]
  - NOCTURIA [None]
  - POLLAKIURIA [None]
  - SLEEP APNOEA SYNDROME [None]
  - THROMBOSIS [None]
